FAERS Safety Report 25728548 (Version 3)
Quarter: 2025Q3

REPORT INFORMATION
  Report Type: Spontaneous
  Country: US (occurrence: US)
  Receive Date: 20250826
  Receipt Date: 20250923
  Transmission Date: 20251020
  Serious: No
  Sender: AMGEN
  Company Number: US-AMGEN-USASP2025170254

PATIENT
  Age: 68 Year
  Sex: Female

DRUGS (12)
  1. OTEZLA [Suspect]
     Active Substance: APREMILAST
     Indication: Psoriasis
     Dosage: 30 MILLIGRAM, BID
     Route: 048
     Dates: start: 20231130, end: 20250912
  2. ATORVASTATIN [Concomitant]
     Active Substance: ATORVASTATIN
  3. DOCUSATE [Concomitant]
     Active Substance: DOCUSATE
  4. ESOMEPRAZOLE [Concomitant]
     Active Substance: ESOMEPRAZOLE
  5. FENOFIBRATE [Concomitant]
     Active Substance: FENOFIBRATE
  6. HYDROXYZINE [Concomitant]
     Active Substance: HYDROXYZINE HYDROCHLORIDE
  7. LEVOTHYROXINE [Concomitant]
     Active Substance: LEVOTHYROXINE
  8. MOVANTIK [Concomitant]
     Active Substance: NALOXEGOL OXALATE
  9. OXYCODONE [Concomitant]
     Active Substance: OXYCODONE
  10. URSODIOL [Concomitant]
     Active Substance: URSODIOL
  11. ESTRACE [Concomitant]
     Active Substance: ESTRADIOL
     Route: 067
  12. BIOTIN [Concomitant]
     Active Substance: BIOTIN

REACTIONS (1)
  - Psoriasis [Recovered/Resolved]

NARRATIVE: CASE EVENT DATE: 20250818
